FAERS Safety Report 4448815-8 (Version None)
Quarter: 2004Q3

REPORT INFORMATION
  Report Type: 
  Country: None (occurrence: None)
  Receive Date: 20040909
  Receipt Date: 20040902
  Transmission Date: 20050211
  Serious: Yes (Life-Threatening)
  Sender: FDA-Public Use
  Company Number: 2004AP04615

PATIENT

DRUGS (2)
  1. SEROQUEL [Suspect]
     Dosage: 25 MG DAILY PO
     Route: 048
     Dates: start: 20040823, end: 20040823
  2. SERENE [Concomitant]

REACTIONS (2)
  - BRADYCARDIA [None]
  - SHOCK [None]
